FAERS Safety Report 7753049-5 (Version None)
Quarter: 2011Q3

REPORT INFORMATION
  Report Type: 
  Country: None (occurrence: None)
  Receive Date: 20110915
  Receipt Date: 20110913
  Transmission Date: 20111222
  Serious: Yes (Other)
  Sender: FDA-Public Use
  Company Number: US-PURDUE-USA-2011-0074547

PATIENT
  Age: 66 Year
  Sex: Female

DRUGS (1)
  1. BETADINE [Suspect]
     Indication: PRODUCT USED FOR UNKNOWN INDICATION

REACTIONS (2)
  - APPLICATION SITE BURN [None]
  - DRUG HYPERSENSITIVITY [None]
